FAERS Safety Report 6368995-7 (Version None)
Quarter: 2009Q3

REPORT INFORMATION
  Report Type: 
  Country: None (occurrence: None)
  Receive Date: 20090922
  Receipt Date: 20090916
  Transmission Date: 20100115
  Serious: Yes (Other)
  Sender: FDA-Public Use
  Company Number: JP-SANOFI-SYNTHELABO-F01200900895

PATIENT
  Sex: Male
  Weight: 74 kg

DRUGS (6)
  1. EPADEL [Concomitant]
     Dosage: 1800 MG
     Route: 048
     Dates: start: 20080810, end: 20090223
  2. LIPITOR [Concomitant]
     Dosage: 10 MG
     Route: 048
     Dates: start: 20080810
  3. OMEPRAL [Concomitant]
     Dosage: 20 MG
     Route: 048
     Dates: start: 20080810
  4. ASPIRIN [Concomitant]
     Indication: ACUTE CORONARY SYNDROME
     Dosage: 100 MG
     Route: 048
     Dates: start: 20080810
  5. CLOPIDOGREL [Suspect]
     Indication: ACUTE CORONARY SYNDROME
     Dosage: STARTING DOSE 300 MG
     Route: 048
     Dates: start: 20080810, end: 20080810
  6. CLOPIDOGREL [Suspect]
     Dosage: MAINTENANCE DOSE
     Route: 048
     Dates: start: 20080811

REACTIONS (1)
  - IN-STENT CORONARY ARTERY RESTENOSIS [None]
